FAERS Safety Report 21072808 (Version 3)
Quarter: 2022Q3

REPORT INFORMATION
  Report Type: Report from Study
  Country: PL (occurrence: PL)
  Receive Date: 20220712
  Receipt Date: 20220823
  Transmission Date: 20221027
  Serious: Yes (Death)
  Sender: FDA-Public Use
  Company Number: PL-EXELIXIS-XL18422053810

PATIENT
  Age: 65 Year
  Sex: Male
  Weight: 80 kg

DRUGS (14)
  1. CABOZANTINIB [Suspect]
     Active Substance: CABOZANTINIB
     Indication: Renal cell carcinoma
     Dosage: 40 MG, QD
     Route: 048
     Dates: start: 20200929
  2. CABOZANTINIB [Suspect]
     Active Substance: CABOZANTINIB
     Dosage: 20 MG, QD
     Route: 048
     Dates: start: 20200929
  3. IPILIMUMAB [Suspect]
     Active Substance: IPILIMUMAB
     Dosage: 1 MG/KG, Q3WEEKS
     Route: 042
     Dates: start: 20200929
  4. NIVOLUMAB [Suspect]
     Active Substance: NIVOLUMAB
     Dosage: 3 MG/KG, Q3WEEKS
     Route: 042
     Dates: start: 20200929
  5. NIVOLUMAB [Suspect]
     Active Substance: NIVOLUMAB
     Dosage: 480 MG, Q4WEEKS
     Route: 042
  6. GLICLAZIDE [Concomitant]
     Active Substance: GLICLAZIDE
  7. HYDROCHLOROTHIAZIDE [Concomitant]
     Active Substance: HYDROCHLOROTHIAZIDE
  8. BISOPROLOL FUMARATE [Concomitant]
     Active Substance: BISOPROLOL FUMARATE
  9. LISINOPRIL [Concomitant]
     Active Substance: LISINOPRIL
  10. Amlopin [Concomitant]
  11. OXYCODONE [Concomitant]
     Active Substance: OXYCODONE
  12. MORPHINE [Concomitant]
     Active Substance: MORPHINE
  13. LANSOPRAZOLE [Concomitant]
     Active Substance: LANSOPRAZOLE
  14. FENTANYL [Concomitant]
     Active Substance: FENTANYL

REACTIONS (1)
  - Death [Fatal]

NARRATIVE: CASE EVENT DATE: 20220101
